FAERS Safety Report 7898479-6 (Version None)
Quarter: 2011Q4

REPORT INFORMATION
  Report Type: 
  Country: None (occurrence: None)
  Receive Date: 20111107
  Receipt Date: 20111027
  Transmission Date: 20120403
  Serious: Yes (Hospitalization, Other)
  Sender: FDA-Public Use
  Company Number: US-BAYER-200944107NA

PATIENT
  Age: 23 Year
  Sex: Female
  Weight: 136.5 kg

DRUGS (21)
  1. MEDRIN [Concomitant]
  2. PROMETHAZINE [Concomitant]
  3. SELENIUM [SELENIUM] [Concomitant]
     Dosage: 50 MG, CONT
  4. ELAVIL [Concomitant]
     Indication: MIGRAINE
     Dosage: 100 MG, UNK
  5. DROSPIRENONE AND ETHINYL ESTRADIOL [Suspect]
     Indication: PREMENSTRUAL SYNDROME
     Route: 048
  6. NEXIUM [Concomitant]
     Indication: GASTRIC DISORDER
  7. ACETAMINOPHEN AND HYDROCODONE BITARTRATE [Concomitant]
  8. DETROL [Concomitant]
  9. TOPIRAMATE [Concomitant]
  10. FLUCONAZOLE [Concomitant]
  11. LEVSIN [Concomitant]
     Dosage: 0.125 MG, BID
     Route: 048
  12. LORTAB [Concomitant]
     Dosage: UNK UNK, PRN
  13. IBUPROFEN [Concomitant]
  14. CYCLOBENZAPRINE [Concomitant]
  15. AMITRIPTYLINE HCL [Concomitant]
  16. YASMIN [Suspect]
     Indication: PREMENSTRUAL SYNDROME
     Dosage: 1 DF (DAILY DOSE), QD, ORAL
     Route: 048
  17. METOCLOPRAMIDE [Concomitant]
  18. CYMBALTA [Concomitant]
     Indication: MIGRAINE
  19. CARAFATE [Concomitant]
  20. YAZ [Suspect]
     Indication: PREMENSTRUAL SYNDROME
     Route: 048
  21. NUVARING [Concomitant]
     Dosage: UNK
     Dates: start: 20090701, end: 20091001

REACTIONS (4)
  - CHOLECYSTECTOMY [None]
  - LIVER DISORDER [None]
  - AUTOIMMUNE HEPATITIS [None]
  - BILIARY DYSKINESIA [None]
